FAERS Safety Report 18610385 (Version 1)
Quarter: 2020Q4

REPORT INFORMATION
  Report Type: Spontaneous
  Country: FR (occurrence: FR)
  Receive Date: 20201214
  Receipt Date: 20201214
  Transmission Date: 20210114
  Serious: Yes (Hospitalization, Other)
  Sender: FDA-Public Use
  Company Number: FR-AMGEN-FRANI2020162235

PATIENT
  Age: 56 Year
  Sex: Male
  Weight: 65 kg

DRUGS (4)
  1. ENTECAVIR. [Concomitant]
     Active Substance: ENTECAVIR
     Dosage: UNK
  2. PROPRANOLOL [Concomitant]
     Active Substance: PROPRANOLOL HYDROCHLORIDE
     Dosage: UNK
  3. BEVACIZUMAB. [Suspect]
     Active Substance: BEVACIZUMAB
     Indication: HEPATOCELLULAR CARCINOMA
     Dosage: UNK, Q3WK, CYCLE 1
     Route: 042
     Dates: start: 20200824
  4. ATEZOLIZUMAB. [Suspect]
     Active Substance: ATEZOLIZUMAB
     Indication: HEPATOCELLULAR CARCINOMA
     Dosage: 1200 MILLIGRAM, Q3WK
     Route: 042
     Dates: start: 20200824

REACTIONS (2)
  - Off label use [Unknown]
  - Peritonitis [Recovered/Resolved]

NARRATIVE: CASE EVENT DATE: 20200824
